FAERS Safety Report 8546859-8 (Version None)
Quarter: 2012Q3

REPORT INFORMATION
  Report Type: 
  Country: None (occurrence: None)
  Receive Date: 20120727
  Receipt Date: 20120112
  Transmission Date: 20120928
  Serious: No
  Sender: FDA-Public Use
  Company Number: US-ASTRAZENECA-2012SE02613

PATIENT
  Age: 23 Year
  Sex: Female
  Weight: 72.6 kg

DRUGS (5)
  1. SEROQUEL [Suspect]
     Route: 048
  2. VYVANSE [Concomitant]
     Indication: ATTENTION DEFICIT/HYPERACTIVITY DISORDER
  3. CLONAPINE [Concomitant]
     Indication: ANXIETY
  4. SEROQUEL [Suspect]
     Indication: BIPOLAR DISORDER
     Route: 048
  5. PROZAC [Concomitant]
     Indication: ANXIETY

REACTIONS (5)
  - MALAISE [None]
  - NASOPHARYNGITIS [None]
  - COUGH [None]
  - SEDATION [None]
  - DRUG DOSE OMISSION [None]
